FAERS Safety Report 4711513-7 (Version None)
Quarter: 2005Q3

REPORT INFORMATION
  Report Type: 
  Country: None (occurrence: None)
  Receive Date: 20050711
  Receipt Date: 20050711
  Transmission Date: 20060218
  Serious: Yes (Life-Threatening, Hospitalization)
  Sender: FDA-Public Use
  Company Number: None

PATIENT
  Age: 26 Year
  Sex: Female
  Weight: 72.5755 kg

DRUGS (2)
  1. PROTONIX [Suspect]
     Indication: GASTROOESOPHAGEAL REFLUX DISEASE
     Dosage: 40MG   ONCE DAILY   ORAL
     Route: 048
     Dates: start: 20050611, end: 20050614
  2. PROTONIX [Suspect]
     Indication: GASTROOESOPHAGEAL REFLUX DISEASE
     Dosage: INTRAVENOU
     Route: 042
     Dates: start: 20050702, end: 20050705

REACTIONS (3)
  - ANAPHYLACTIC REACTION [None]
  - EPIGLOTTITIS [None]
  - LATEX ALLERGY [None]
